FAERS Safety Report 16288173 (Version 1)
Quarter: 2019Q2

REPORT INFORMATION
  Report Type: Report from Study
  Country: US (occurrence: US)
  Receive Date: 20190508
  Receipt Date: 20190508
  Transmission Date: 20190711
  Serious: Yes (Other)
  Sender: FDA-Public Use
  Company Number: US-GILEAD-2019-0406086

PATIENT
  Sex: Male

DRUGS (1)
  1. SOFOSBUVIR W/VELPATASVIR [Suspect]
     Active Substance: SOFOSBUVIR\VELPATASVIR
     Indication: CHRONIC HEPATITIS C
     Dosage: UNK, QD
     Route: 048
     Dates: start: 201710, end: 201712

REACTIONS (4)
  - Hepatitis C [Not Recovered/Not Resolved]
  - Drug ineffective [Not Recovered/Not Resolved]
  - Memory impairment [Not Recovered/Not Resolved]
  - Hepatic cirrhosis [Not Recovered/Not Resolved]
